FAERS Safety Report 4424198-4 (Version None)
Quarter: 2004Q3

REPORT INFORMATION
  Report Type: 
  Country: None (occurrence: None)
  Receive Date: 20040812
  Receipt Date: 20040803
  Transmission Date: 20050211
  Serious: Yes (Life-Threatening)
  Sender: FDA-Public Use
  Company Number: 200417747GDDC

PATIENT
  Age: 90 Year
  Sex: Female

DRUGS (9)
  1. RAMIPRIL [Suspect]
     Route: 048
  2. FRUSEMIDE [Suspect]
     Route: 048
  3. AUGMENTIN '125' [Suspect]
     Indication: ARTHRITIS BACTERIAL
     Route: 042
     Dates: start: 20040709, end: 20040709
  4. DIGOXIN [Suspect]
     Route: 048
  5. FELODIPINE [Suspect]
     Route: 048
  6. ALBUTEROL SULFATE [Concomitant]
     Indication: ASTHMA
     Dosage: DOSE: 100 MCG X 2
     Route: 055
  7. BUDESONIDE [Concomitant]
     Indication: ASTHMA
     Dosage: DOSE: 200 MCG X 2
     Route: 055
  8. ASPIRIN [Concomitant]
     Route: 048
  9. LACTULOSE [Concomitant]
     Route: 048

REACTIONS (4)
  - DYSPNOEA [None]
  - OXYGEN SATURATION DECREASED [None]
  - PALPITATIONS [None]
  - VOMITING [None]
